FAERS Safety Report 8836865 (Version 1)
Quarter: 2012Q4

REPORT INFORMATION
  Report Type: Spontaneous
  Country: DK (occurrence: None)
  Receive Date: 20121010
  Receipt Date: 20121010
  Transmission Date: 20130627
  Serious: Yes (Other)
  Sender: FDA-Public Use
  Company Number: 2012MA012030

PATIENT
  Age: 91 Year
  Sex: Female

DRUGS (5)
  1. INDAPAMID [Suspect]
     Route: 048
     Dates: start: 20120713, end: 20120913
  2. LOSARTAN [Concomitant]
  3. CITALOPRAM [Concomitant]
  4. AMILORIDE [Concomitant]
  5. SOTALOL [Concomitant]

REACTIONS (2)
  - Balance disorder [None]
  - Confusional state [None]
